FAERS Safety Report 6022117-0 (Version None)
Quarter: 2008Q4

REPORT INFORMATION
  Report Type: 
  Country: None (occurrence: None)
  Receive Date: 20081223
  Receipt Date: 20081211
  Transmission Date: 20090506
  Serious: Yes (Other)
  Sender: FDA-Public Use
  Company Number: 038180

PATIENT
  Age: 22 Year
  Sex: Female

DRUGS (2)
  1. CLARAVIS(ISOTRETNOIN) CAPSULE, 30MG [Suspect]
     Dosage: 60 MG, QD, ORAL
     Route: 048
     Dates: start: 20081023
  2. SOTRET [Suspect]
     Dosage: 60 MG;QD;ORAL
     Route: 048
     Dates: start: 20080827

REACTIONS (2)
  - TREATMENT NONCOMPLIANCE [None]
  - UNINTENDED PREGNANCY [None]
